FAERS Safety Report 23092623 (Version 1)
Quarter: 2023Q4

REPORT INFORMATION
  Report Type: Report from Study
  Country: CA (occurrence: CA)
  Receive Date: 20231021
  Receipt Date: 20231021
  Transmission Date: 20240110
  Serious: Yes (Other)
  Sender: FDA-Public Use
  Company Number: None

PATIENT
  Age: 80 Year
  Sex: Female

DRUGS (2)
  1. MONTELUKAST [Suspect]
     Active Substance: MONTELUKAST SODIUM
     Indication: Urticaria
     Dosage: 1 EVERY 1 DAYS
     Route: 048
  2. BILASTINE [Suspect]
     Active Substance: BILASTINE
     Indication: Urticaria
     Dosage: 1 EVERY 1 DAYS
     Route: 065

REACTIONS (6)
  - Pruritus [Unknown]
  - Dementia Alzheimer^s type [Unknown]
  - Rash [Unknown]
  - Urticaria [Unknown]
  - Feeling hot [Unknown]
  - Drug ineffective [Unknown]
